FAERS Safety Report 11572809 (Version 2)
Quarter: 2015Q4

REPORT INFORMATION
  Report Type: Spontaneous
  Country: US (occurrence: US)
  Receive Date: 20150916
  Receipt Date: 20151027
  Transmission Date: 20160304
  Serious: No
  Sender: FDA-Public Use
  Company Number: US-ELI_LILLY_AND_COMPANY-US200910004682

PATIENT
  Age: 54 Year
  Sex: Female

DRUGS (3)
  1. FORTEO [Suspect]
     Active Substance: TERIPARATIDE
     Dosage: 20 UG, DAILY (1/D)
     Route: 065
  2. DHEA [Concomitant]
     Active Substance: PRASTERONE
     Indication: IMMUNE SYSTEM DISORDER
  3. FORTEO [Suspect]
     Active Substance: TERIPARATIDE
     Indication: OSTEOPOROSIS
     Dosage: 20 UG, DAILY (1/D)
     Route: 065
     Dates: start: 20091009

REACTIONS (14)
  - Presyncope [Recovered/Resolved]
  - Feeling hot [Recovered/Resolved]
  - Bedridden [Recovering/Resolving]
  - Fear of crowded places [Recovered/Resolved]
  - Viral infection [Recovering/Resolving]
  - Injection site erythema [Unknown]
  - Dizziness [Unknown]
  - Asthenia [Recovering/Resolving]
  - Hyperhidrosis [Recovered/Resolved]
  - Nausea [Recovered/Resolved]
  - Feeling abnormal [Recovered/Resolved]
  - Body temperature increased [Recovering/Resolving]
  - Oropharyngeal pain [Recovering/Resolving]
  - Anxiety [Not Recovered/Not Resolved]

NARRATIVE: CASE EVENT DATE: 2009
